FAERS Safety Report 7809991-X (Version None)
Quarter: 2011Q4

REPORT INFORMATION
  Report Type: 
  Country: None (occurrence: None)
  Receive Date: 20111012
  Receipt Date: 20111007
  Transmission Date: 20120403
  Serious: Yes (Death)
  Sender: FDA-Public Use
  Company Number: IN-SANOFI-AVENTIS-2011SA065571

PATIENT
  Sex: Female

DRUGS (1)
  1. ENOXAPARIN SODIUM [Suspect]
     Route: 058
     Dates: end: 20111007

REACTIONS (5)
  - FEELING ABNORMAL [None]
  - ABDOMINAL PAIN UPPER [None]
  - HYPOTENSION [None]
  - DEATH [None]
  - DIZZINESS [None]
